FAERS Safety Report 9383625 (Version 1)
Quarter: 2013Q3

REPORT INFORMATION
  Report Type: Spontaneous
  Country: US (occurrence: US)
  Receive Date: 20130704
  Receipt Date: 20130704
  Transmission Date: 20140515
  Serious: No
  Sender: FDA-Public Use
  Company Number: US-PFIZER INC-2013197161

PATIENT
  Age: 85 Year
  Sex: Female

DRUGS (12)
  1. LOPID [Suspect]
     Dosage: UNK
  2. PREMARIN [Suspect]
     Dosage: UNK
  3. ALTACE [Suspect]
     Dosage: UNK
  4. HYDROCHLOROTHIAZIDE [Suspect]
     Dosage: UNK
  5. BENZOCAINE [Suspect]
     Dosage: UNK
  6. MEVACOR [Suspect]
     Dosage: UNK
  7. QUESTRAN [Suspect]
     Dosage: UNK
  8. AGGRENOX [Suspect]
     Dosage: UNK
  9. PLAVIX [Suspect]
     Dosage: UNK
  10. TICLID [Suspect]
     Dosage: UNK
  11. ZETIA [Suspect]
     Dosage: UNK
  12. ZOCOR [Suspect]
     Dosage: UNK

REACTIONS (1)
  - Drug hypersensitivity [Unknown]
